FAERS Safety Report 25263884 (Version 1)
Quarter: 2025Q2

REPORT INFORMATION
  Report Type: Spontaneous
  Country: US (occurrence: None)
  Receive Date: 20250501
  Receipt Date: 20250501
  Transmission Date: 20250717
  Serious: Yes (Hospitalization)
  Sender: FDA-CTU
  Company Number: None

PATIENT
  Age: 69 Year
  Sex: Female
  Weight: 52.1 kg

DRUGS (1)
  1. PENTAM 300 [Suspect]
     Active Substance: PENTAMIDINE ISETHIONATE
     Indication: Pneumocystis jirovecii pneumonia
     Dosage: 200 MG DAILY INTRAVENOUS
     Route: 042
     Dates: start: 20250422, end: 20250424

REACTIONS (1)
  - Pancytopenia [None]

NARRATIVE: CASE EVENT DATE: 20250425
